FAERS Safety Report 9450465 (Version 1)
Quarter: 2013Q3

REPORT INFORMATION
  Report Type: Spontaneous
  Country: US (occurrence: US)
  Receive Date: 20130809
  Receipt Date: 20130809
  Transmission Date: 20140515
  Serious: No
  Sender: FDA-Public Use
  Company Number: US-PFIZER INC-2013231986

PATIENT
  Age: 74 Year
  Sex: Female
  Weight: 104 kg

DRUGS (6)
  1. EFFEXOR XR [Suspect]
     Indication: DEPRESSION
     Dosage: 150 MG, 1X/DAY
     Dates: start: 2008
  2. METFORMIN [Concomitant]
     Dosage: 1000 MG(2 X 500 MG), 1X/DAY
  3. LISINOPRIL [Concomitant]
     Dosage: 10 MG, UNK
  4. LANTUS [Concomitant]
     Dosage: 65 IU, UNK
  5. NOVOLOG [Concomitant]
     Dosage: 13 IU, UNK
  6. SIMVASTATIN [Concomitant]
     Dosage: UNK

REACTIONS (1)
  - Drug ineffective [Unknown]
